FAERS Safety Report 5105463-4 (Version None)
Quarter: 2006Q3

REPORT INFORMATION
  Report Type: 
  Country: None (occurrence: None)
  Receive Date: 20060915
  Receipt Date: 20060721
  Transmission Date: 20061208
  Serious: No
  Sender: FDA-Public Use
  Company Number: US-GLAXOSMITHKLINE-A0613111A

PATIENT
  Age: 65 Year
  Sex: Male

DRUGS (3)
  1. AVANDARYL [Suspect]
     Route: 048
     Dates: start: 20060601
  2. COREG [Concomitant]
  3. DIOVAN [Concomitant]

REACTIONS (1)
  - WEIGHT INCREASED [None]
